FAERS Safety Report 6566534-9 (Version None)
Quarter: 2010Q1

REPORT INFORMATION
  Report Type: 
  Country: None (occurrence: None)
  Receive Date: 20100202
  Receipt Date: 20100104
  Transmission Date: 20100710
  Serious: Yes (Life-Threatening, Hospitalization)
  Sender: FDA-Public Use
  Company Number: US-SANOFI-AVENTIS-2010SA004706

PATIENT
  Age: 68 Year
  Sex: Male
  Weight: 120 kg

DRUGS (7)
  1. CLOPIDOGREL BISULFATE [Suspect]
     Indication: PERCUTANEOUS CORONARY INTERVENTION
     Dosage: 4 POST-PROCEDURE CAPSULES DOSE:4 UNIT(S)
     Route: 048
     Dates: start: 20090224, end: 20090224
  2. PLACEBO [Suspect]
     Indication: PERCUTANEOUS CORONARY INTERVENTION
     Dosage: DOSE:4 UNIT(S)
     Route: 048
     Dates: start: 20090224, end: 20090224
  3. PLACEBO [Suspect]
     Route: 040
     Dates: start: 20090224, end: 20090224
  4. PLACEBO [Suspect]
     Dosage: INFUSION
     Route: 065
     Dates: start: 20090224, end: 20090224
  5. ASPIRIN [Concomitant]
  6. HEPARIN [Concomitant]
  7. HEPARIN-FRACTION [Concomitant]

REACTIONS (1)
  - PULMONARY OEDEMA [None]
